FAERS Safety Report 4382865-5 (Version None)
Quarter: 2004Q2

REPORT INFORMATION
  Report Type: 
  Country: None (occurrence: None)
  Receive Date: 20040602
  Receipt Date: 20031001
  Transmission Date: 20050107
  Serious: Yes (Other)
  Sender: FDA-Public Use
  Company Number: NSADSS2002047996

PATIENT
  Age: 54 Year
  Sex: Female
  Weight: 111.1313 kg

DRUGS (6)
  1. PROPULSID [Suspect]
     Indication: GASTROOESOPHAGEAL REFLUX DISEASE
     Dosage: 20 MG, 2 IN 1 DAY, ORAL
     Route: 048
     Dates: start: 19990801, end: 20000301
  2. AMITRIPTYLINE HCL [Concomitant]
  3. RELAFEN [Concomitant]
  4. ELAVIL [Concomitant]
  5. ZIAC (BISELECT) [Concomitant]
  6. AVAPRO [Concomitant]

REACTIONS (7)
  - ANXIETY [None]
  - CHEST PAIN [None]
  - DIABETIC NEUROPATHY [None]
  - ELECTROCARDIOGRAM QT CORRECTED INTERVAL PROLONGED [None]
  - LIVER FUNCTION TEST ABNORMAL [None]
  - TACHYCARDIA [None]
  - VERTIGO [None]
